FAERS Safety Report 9781071 (Version 1)
Quarter: 2013Q4

REPORT INFORMATION
  Report Type: Spontaneous
  Country: GB (occurrence: GB)
  Receive Date: 20131224
  Receipt Date: 20131224
  Transmission Date: 20140711
  Serious: Yes (Other)
  Sender: FDA-Public Use
  Company Number: PHHY2013GB147838

PATIENT
  Age: 32 Year
  Sex: Male

DRUGS (2)
  1. CICLOSPORIN [Suspect]
  2. PREDNISOLONE [Suspect]

REACTIONS (1)
  - Renal impairment [Unknown]
